FAERS Safety Report 8849683 (Version 2)
Quarter: 2013Q1

REPORT INFORMATION
  Report Type: Report from Study
  Country: DE (occurrence: DE)
  Receive Date: 20121019
  Receipt Date: 20130108
  Transmission Date: 20140127
  Serious: Yes (Death, Other)
  Sender: FDA-Public Use
  Company Number: PHHY2012DE092617

PATIENT
  Age: 59 Year
  Sex: Male
  Weight: 124 kg

DRUGS (27)
  1. ZOLEDRONATE [Suspect]
     Indication: BONE DISORDER
     Dosage: 4 MG/ 5ML, EVERY 4 WEEKS
     Dates: start: 20110626
  2. ZOLEDRONATE [Suspect]
     Dosage: 4 MG, EVERY 4 WEEKS
     Dates: start: 20120123, end: 201204
  3. ALLOPURINOL [Concomitant]
     Dosage: 300 MG, 1-0-0
     Dates: start: 20110524, end: 20120714
  4. AMLODIPIN [Concomitant]
     Dosage: 5 MG, 1-0-0
     Dates: start: 20110524, end: 20110714
  5. GLIBEN HEXAL [Concomitant]
     Dosage: 3 MG, 1-0-0
     Dates: start: 20110524, end: 20120714
  6. SIMVASTATIN [Concomitant]
     Dosage: 20 MG, 1-0-0
     Dates: start: 20110524, end: 20120714
  7. BICALUTAMIDE [Concomitant]
     Dosage: 50 MG, 1-0-0
     Dates: start: 20110524, end: 20110819
  8. CALCIMAGON [Concomitant]
     Dosage: UNK UKN, UNK, 1-0-1
     Dates: start: 20110819, end: 20120714
  9. CALCIUM [Concomitant]
     Dosage: 1000 MG, DAILY, 0-1-0
     Dates: start: 20110819, end: 20120714
  10. AMPHOMORONAL [Concomitant]
     Dosage: UNK UKN, UNK, 1-1-1-1
     Dates: start: 20120709, end: 20120714
  11. TANTUM VERDE [Concomitant]
     Dosage: UNK UKN, UNK, 4X DAILY
     Dates: start: 20120709, end: 20120714
  12. CLEXANE [Concomitant]
     Dosage: 60 IU, 1-0-1
     Route: 058
     Dates: start: 20120709, end: 20120714
  13. PREDNISOLON [Concomitant]
     Dosage: 5 MG, 1-0-1
     Dates: start: 20120709, end: 20120714
  14. PANTOZOL [Concomitant]
     Indication: GASTRITIS
     Dosage: 40 MG, 1-0-1
     Dates: start: 20120709, end: 20120714
  15. ONDANSETRON [Concomitant]
     Dosage: 1 DF, PRN
     Dates: start: 20111201, end: 20120714
  16. ONDANSETRON [Concomitant]
     Dosage: 8 MG, UNK
     Dates: start: 20111207, end: 20120229
  17. MCP [Concomitant]
     Dosage: UNK UKN, UNK, 20-20-20
     Dates: start: 20111201, end: 20120714
  18. ZYTIGA [Concomitant]
     Indication: PROSTATE CANCER
     Dosage: 4 DF, DAILY
     Dates: start: 20120514
  19. ERYPO [Concomitant]
     Dosage: 40000 IU, 1X WEEKLY
     Dates: start: 20120709, end: 20120714
  20. VITAMIN D [Concomitant]
     Dosage: 800 MG, DAILY
  21. DOCETAXEL [Concomitant]
     Dosage: 75 MG/M2, UNK
     Dates: start: 20111207, end: 20120229
  22. DEXAMETHASON [Concomitant]
     Dosage: 8 MG, (DAY BEFORE CHEMOTHERAPY)
     Dates: start: 20111207
  23. DEXAMETHASON [Concomitant]
     Dosage: 4 MG, (DAY OF THE CHEMOTHERAPY)
  24. DEXAMETHASON [Concomitant]
     Dosage: 4 MG, (DAY OF THE CHEMOTHERAPY)
     Dates: end: 20120229
  25. RANITIDIN [Concomitant]
     Dosage: 50 MG, UNK
     Dates: start: 20111207, end: 20120229
  26. CLEMASTINE [Concomitant]
     Dosage: 2 MG, UNK
     Dates: start: 20111207, end: 20120229
  27. NACL [Concomitant]
     Dosage: 500 ML, UNK
     Dates: start: 20111207, end: 20120229

REACTIONS (3)
  - Cardiac failure [Fatal]
  - Osteoporosis [Unknown]
  - Osteonecrosis of jaw [Recovered/Resolved]
